FAERS Safety Report 7055552-2 (Version None)
Quarter: 2010Q4

REPORT INFORMATION
  Report Type: 
  Country: None (occurrence: None)
  Receive Date: 20101021
  Receipt Date: 20101013
  Transmission Date: 20110411
  Serious: Yes (Hospitalization)
  Sender: FDA-Public Use
  Company Number: JP-BAXTER-2010BH025887

PATIENT
  Sex: Male

DRUGS (3)
  1. EXTRANEAL [Suspect]
     Indication: PERITONEAL DIALYSIS
     Route: 033
     Dates: start: 20100827
  2. DIANEAL LOW CALCIUM W/ DEXTROSE 1.5% [Suspect]
     Indication: RENAL FAILURE CHRONIC
     Route: 033
     Dates: start: 20100605
  3. DIANEAL LOW CALCIUM W/ DEXTROSE 1.5% [Suspect]
     Indication: PERITONEAL DIALYSIS
     Route: 033
     Dates: start: 20100605

REACTIONS (7)
  - BLOOD PHOSPHORUS INCREASED [None]
  - CARDIAC FAILURE [None]
  - CATHETER SITE HAEMORRHAGE [None]
  - FLUID RETENTION [None]
  - HYPERPHAGIA [None]
  - POLYDIPSIA [None]
  - WEIGHT INCREASED [None]
